FAERS Safety Report 10890854 (Version 2)
Quarter: 2015Q2

REPORT INFORMATION
  Report Type: Report from Study
  Country: JP (occurrence: JP)
  Receive Date: 20150305
  Receipt Date: 20150401
  Transmission Date: 20150821
  Serious: Yes (Hospitalization, Disabling)
  Sender: FDA-Public Use
  Company Number: JP-ROCHE-1548503

PATIENT
  Age: 75 Year
  Sex: Female
  Weight: 45 kg

DRUGS (13)
  1. ARICEPT [Concomitant]
     Active Substance: DONEPEZIL HYDROCHLORIDE
     Route: 048
  2. OLMETEC [Concomitant]
     Active Substance: OLMESARTAN MEDOXOMIL
     Route: 048
  3. KREMEZIN [Concomitant]
     Active Substance: ACTIVATED CHARCOAL
     Route: 048
  4. EQUA [Concomitant]
     Active Substance: VILDAGLIPTIN
     Route: 048
  5. SODIUM BICARBONATE. [Concomitant]
     Active Substance: SODIUM BICARBONATE
     Route: 048
  6. FUROSEMIDE. [Concomitant]
     Active Substance: FUROSEMIDE
     Route: 048
  7. REBAMIPIDE [Concomitant]
     Active Substance: REBAMIPIDE
     Route: 048
  8. FEROTYM [Concomitant]
     Active Substance: FERROUS CITRATE\SODIUM
     Indication: DIABETIC NEPHROPATHY
     Route: 048
  9. METHOXY POLYETHYLENE GLYCOL-EPOETIN BETA [Suspect]
     Active Substance: METHOXY POLYETHYLENE GLYCOL-EPOETIN BETA
     Indication: NEPHROGENIC ANAEMIA
     Route: 058
     Dates: start: 20120906, end: 20121219
  10. CRESTOR [Concomitant]
     Active Substance: ROSUVASTATIN CALCIUM
     Route: 048
  11. NIFEDIPINE CR [Concomitant]
     Active Substance: NIFEDIPINE
     Route: 048
  12. FEBURIC [Concomitant]
     Active Substance: FEBUXOSTAT
     Route: 048
  13. PRECIPITATED CALCIUM CARBONATE [Concomitant]
     Active Substance: CALCIUM CARBONATE
     Route: 048

REACTIONS (2)
  - Anaemia [Recovering/Resolving]
  - Diabetic nephropathy [Not Recovered/Not Resolved]

NARRATIVE: CASE EVENT DATE: 20121219
